FAERS Safety Report 5724572-X (Version None)
Quarter: 2008Q2

REPORT INFORMATION
  Report Type: 
  Country: None (occurrence: None)
  Receive Date: 20080428
  Receipt Date: 20070730
  Transmission Date: 20081010
  Serious: Yes (Other)
  Sender: FDA-Public Use
  Company Number: 77302

PATIENT
  Sex: Female

DRUGS (4)
  1. ALVESCO [Suspect]
     Indication: ASTHMA
     Dosage: 2 DAY 160 UG INHALATION
     Route: 055
     Dates: start: 20070101, end: 20070501
  2. CICLESONIDE [Concomitant]
  3. LEVOTHYROXINE SODIUM [Concomitant]
  4. CANDESARTAN CILEXETIL [Concomitant]

REACTIONS (1)
  - SWEAT GLAND INFECTION [None]
